FAERS Safety Report 19008167 (Version 2)
Quarter: 2021Q3

REPORT INFORMATION
  Report Type: Other
  Country: CN (occurrence: CN)
  Receive Date: 20210316
  Receipt Date: 20210907
  Transmission Date: 20211014
  Serious: Yes (Hospitalization, Other)
  Sender: FDA-Public Use
  Company Number: CN-ROCHE-2086378

PATIENT
  Age: 54 Year
  Sex: Male
  Weight: 74 kg

DRUGS (3)
  1. AVASTIN [Suspect]
     Active Substance: BEVACIZUMAB
     Route: 041
     Dates: start: 20190730, end: 20210113
  2. AVASTIN [Suspect]
     Active Substance: BEVACIZUMAB
     Indication: COLORECTAL CANCER
     Route: 041
     Dates: start: 20170721
  3. AVASTIN [Suspect]
     Active Substance: BEVACIZUMAB
     Route: 041
     Dates: end: 20210728

REACTIONS (11)
  - Glossitis [Unknown]
  - Nasopharyngitis [Unknown]
  - Oedema peripheral [Unknown]
  - Weight decreased [Unknown]
  - Stomatitis [Unknown]
  - Protein urine present [Unknown]
  - Nephropathy [Unknown]
  - Pneumonia [Recovering/Resolving]
  - Appendicitis [Recovered/Resolved]
  - Immunodeficiency [Unknown]
  - Tracheitis [Unknown]
